FAERS Safety Report 6612163-8 (Version None)
Quarter: 2010Q1

REPORT INFORMATION
  Report Type: 
  Country: None (occurrence: None)
  Receive Date: 20100302
  Receipt Date: 20100302
  Transmission Date: 20100710
  Serious: Yes (Hospitalization)
  Sender: FDA-Public Use
  Company Number: None

PATIENT
  Age: 46 Year
  Sex: Female
  Weight: 54.4316 kg

DRUGS (1)
  1. RECLAST [Suspect]
     Indication: OSTEOPENIA
     Dosage: YEARLY IV, ONCE
     Route: 042
     Dates: start: 20100223, end: 20100223

REACTIONS (10)
  - ABASIA [None]
  - ARTHRALGIA [None]
  - BONE PAIN [None]
  - CHILLS [None]
  - GAIT DISTURBANCE [None]
  - GASTROINTESTINAL MOTILITY DISORDER [None]
  - MUSCULOSKELETAL CHEST PAIN [None]
  - PAIN [None]
  - PYREXIA [None]
  - URTICARIA [None]
